FAERS Safety Report 4279913-X (Version None)
Quarter: 2004Q1

REPORT INFORMATION
  Report Type: 
  Country: None (occurrence: None)
  Receive Date: 20040127
  Receipt Date: 20040127
  Transmission Date: 20041129
  Serious: Yes (Hospitalization)
  Sender: FDA-Public Use
  Company Number: None

PATIENT
  Sex: Female
  Weight: 60 kg

DRUGS (2)
  1. VANCOMYCIN [Suspect]
     Indication: CELLULITIS
     Dosage: 1500 MG   EVERY 12 H   INTRAVENOUS
     Route: 042
     Dates: start: 20031217, end: 20040104
  2. VANCOMYCIN [Suspect]
     Indication: STAPHYLOCOCCAL INFECTION
     Dosage: 1500 MG   EVERY 12 H   INTRAVENOUS
     Route: 042
     Dates: start: 20031217, end: 20040104

REACTIONS (1)
  - STEVENS-JOHNSON SYNDROME [None]
